FAERS Safety Report 6613398-0 (Version None)
Quarter: 2010Q1

REPORT INFORMATION
  Report Type: 
  Country: None (occurrence: None)
  Receive Date: 20100304
  Receipt Date: 20100223
  Transmission Date: 20100710
  Serious: Yes (Hospitalization)
  Sender: FDA-Public Use
  Company Number: FR-NOVOPROD-303698

PATIENT
  Age: 78 Year
  Sex: Male
  Weight: 127.5 kg

DRUGS (18)
  1. INSULATARD INNOLET [Suspect]
     Indication: TYPE 2 DIABETES MELLITUS
     Dosage: 84 IU, QD
     Route: 058
  2. INSULATARD INNOLET [Suspect]
     Dosage: UNK
  3. HUMALOG [Suspect]
     Indication: TYPE 2 DIABETES MELLITUS
     Dosage: 10 IU, QD
     Route: 058
     Dates: end: 20090402
  4. CRESTOR [Concomitant]
     Dosage: 10 MG, QD
     Route: 048
  5. AMLOR [Concomitant]
     Dosage: 5 MG, UNK
     Route: 048
  6. LASIX [Concomitant]
     Dosage: 250 MG, QD
     Route: 048
  7. ZYLORIC                            /00003301/ [Concomitant]
     Dosage: 200 MG, QD
     Route: 048
  8. PERMIXON                           /00833501/ [Concomitant]
     Dosage: 160 MG, QD
     Route: 048
  9. TAMSULOSIN HCL [Concomitant]
     Dosage: 0.4 MG, QD
     Route: 048
  10. PREVISCAN                          /00789001/ [Concomitant]
     Dosage: 15 MG, QD
     Route: 048
  11. BRONCHODUAL [Concomitant]
     Dosage: UK/NASAL
     Route: 045
  12. KENZEN [Concomitant]
     Dosage: 16 MG, QD
     Route: 048
  13. TRIATEC                            /00116401/ [Concomitant]
     Dosage: 10 MG, QD
     Route: 048
  14. DIFFU K [Concomitant]
     Dosage: 1200 MG, QD
     Route: 048
     Dates: end: 20090403
  15. NOCTAMIDE [Concomitant]
     Dosage: 2 MG, QD
     Route: 048
  16. BECLOMETHASONE DIPROPIONATE [Concomitant]
     Dosage: NASAL
     Route: 045
  17. FORMOTEROL FUMARATE [Concomitant]
  18. FUMAFER [Concomitant]
     Indication: IRON DEFICIENCY ANAEMIA

REACTIONS (2)
  - HYPOGLYCAEMIA [None]
  - MALAISE [None]
